FAERS Safety Report 5271556-4 (Version None)
Quarter: 2007Q1

REPORT INFORMATION
  Report Type: 
  Country: None (occurrence: None)
  Receive Date: 20070314
  Receipt Date: 20061213
  Transmission Date: 20070707
  Serious: Yes (Hospitalization)
  Sender: FDA-Public Use
  Company Number: PRI050412006052

PATIENT
  Age: 68 Year
  Sex: Male
  Weight: 73.0291 kg

DRUGS (9)
  1. OXALIPLATIN [Suspect]
     Indication: COLON CANCER METASTATIC
     Dosage: 160MG IVPB Q2W
     Dates: start: 20061026, end: 20061211
  2. ASPIRIN [Concomitant]
  3. COZAAR [Concomitant]
  4. ZEBETA [Concomitant]
  5. LIPITOR [Concomitant]
  6. ALOXI [Concomitant]
  7. DECADRON [Concomitant]
  8. PLAVIX [Concomitant]
  9. MULTI-VITAMIN [Concomitant]

REACTIONS (8)
  - ATRIAL FIBRILLATION [None]
  - BLOOD ALKALINE PHOSPHATASE INCREASED [None]
  - BLOOD GLUCOSE INCREASED [None]
  - BLOOD MAGNESIUM DECREASED [None]
  - CORONARY ARTERIAL STENT INSERTION [None]
  - ELECTROCARDIOGRAM ST SEGMENT DEPRESSION [None]
  - NAUSEA [None]
  - VOMITING [None]
